FAERS Safety Report 8947903 (Version 1)
Quarter: 2012Q4

REPORT INFORMATION
  Report Type: 
  Country: US (occurrence: US)
  Receive Date: 20121204
  Receipt Date: 20121204
  Transmission Date: 20130627
  Serious: No
  Sender: FDA-Public Use
  Company Number: US-B.I. PHARMACEUTICALS,INC./RIDGEFIELD-2012-BI-01467BP

PATIENT
  Age: 70 Year
  Sex: Male
  Weight: 84 kg

DRUGS (5)
  1. SPIRIVA [Suspect]
     Indication: CHRONIC OBSTRUCTIVE PULMONARY DISEASE
     Dosage: 18 mcg
     Route: 055
     Dates: start: 2010
  2. SPIRIVA [Suspect]
     Route: 048
     Dates: start: 20121125, end: 20121125
  3. COMBIVENT [Suspect]
     Indication: CHRONIC OBSTRUCTIVE PULMONARY DISEASE
     Route: 055
     Dates: start: 2010
  4. SYMBICORT [Concomitant]
  5. VENLAFAXINE [Concomitant]
     Indication: ANTIDEPRESSANT THERAPY
     Route: 048
     Dates: start: 2012

REACTIONS (3)
  - Incorrect route of drug administration [Recovered/Resolved]
  - Visual impairment [Recovered/Resolved]
  - Cataract [Not Recovered/Not Resolved]
